FAERS Safety Report 8106730-2 (Version None)
Quarter: 2012Q1

REPORT INFORMATION
  Report Type: 
  Country: None (occurrence: None)
  Receive Date: 20120202
  Receipt Date: 20120131
  Transmission Date: 20120608
  Serious: Yes (Other)
  Sender: FDA-Public Use
  Company Number: NO-SANOFI-AVENTIS-2012SA006635

PATIENT
  Age: 46 Year
  Sex: Female

DRUGS (1)
  1. FLAGYL [Suspect]
     Route: 065

REACTIONS (1)
  - PERIPHERAL SENSORY NEUROPATHY [None]
